FAERS Safety Report 22517750 (Version 1)
Quarter: 2023Q2

REPORT INFORMATION
  Report Type: Spontaneous
  Country: ES (occurrence: None)
  Receive Date: 20230604
  Receipt Date: 20230604
  Transmission Date: 20230722
  Serious: Yes (Hospitalization)
  Sender: FDA-Public Use
  Company Number: 2023A126322

PATIENT
  Age: 22 Year
  Sex: Female

DRUGS (3)
  1. EVUSHELD [Suspect]
     Active Substance: CILGAVIMAB\TIXAGEVIMAB
     Indication: COVID-19 prophylaxis
     Dosage: 3.0ML ONCE/SINGLE ADMINISTRATION
     Dates: start: 20221130, end: 20221130
  2. RITUXIMAB [Suspect]
     Active Substance: RITUXIMAB
     Dates: start: 201904, end: 20220620
  3. MICOFENOLATO SODIO [Concomitant]
     Dates: start: 201712

REACTIONS (3)
  - Febrile neutropenia [Recovered/Resolved]
  - Aphthous ulcer [Recovering/Resolving]
  - Pancytopenia [Recovered/Resolved]

NARRATIVE: CASE EVENT DATE: 20221215
